FAERS Safety Report 7128954-3 (Version None)
Quarter: 2010Q4

REPORT INFORMATION
  Report Type: 
  Country: None (occurrence: None)
  Receive Date: 20101130
  Receipt Date: 20101119
  Transmission Date: 20110411
  Serious: Yes (Other)
  Sender: FDA-Public Use
  Company Number: JP-JNJFOC-20101107684

PATIENT

DRUGS (4)
  1. RISPERDAL [Suspect]
     Indication: AGITATION
     Route: 048
  2. HALOPERIDOL [Suspect]
     Indication: ILL-DEFINED DISORDER
     Route: 065
  3. ESTAZOLAM [Concomitant]
     Indication: ILL-DEFINED DISORDER
     Route: 048
  4. UNKNOWN MEDICATION [Concomitant]
     Indication: ILL-DEFINED DISORDER
     Route: 048

REACTIONS (1)
  - LIMB INJURY [None]
